FAERS Safety Report 6601117-3 (Version None)
Quarter: 2010Q1

REPORT INFORMATION
  Report Type: 
  Country: None (occurrence: None)
  Receive Date: 20100224
  Receipt Date: 20100224
  Transmission Date: 20100710
  Serious: Yes (Life-Threatening, Hospitalization)
  Sender: FDA-Public Use
  Company Number: None

PATIENT
  Sex: Female
  Weight: 92.0802 kg

DRUGS (1)
  1. OSMOPREP [Suspect]
     Indication: COLONOSCOPY
     Dosage: 20 BY MOUTH W/IN 2 HRS 4 MORE 4 HRS LATER 8 MORE AS NEEDED (SEE INSTRUCTIONS INCLUDED)
     Dates: start: 20100204

REACTIONS (7)
  - ABDOMINAL DISTENSION [None]
  - DEHYDRATION [None]
  - DIZZINESS [None]
  - HYPONATRAEMIA [None]
  - HYPOVOLAEMIA [None]
  - SPEECH DISORDER [None]
  - VOMITING PROJECTILE [None]
